FAERS Safety Report 18677850 (Version 2)
Quarter: 2021Q1

REPORT INFORMATION
  Report Type: Spontaneous
  Country: US (occurrence: US)
  Receive Date: 20201229
  Receipt Date: 20210104
  Transmission Date: 20210419
  Serious: No
  Sender: FDA-Public Use
  Company Number: US-PFIZER INC-2020513634

PATIENT
  Age: 61 Year
  Sex: Male

DRUGS (1)
  1. IBRANCE [Suspect]
     Active Substance: PALBOCICLIB
     Indication: BREAST CANCER MALE
     Dosage: 125 MG, CYCLIC (21 DAYS OFF, 7OFF)
     Dates: start: 20201113

REACTIONS (4)
  - Dysuria [Unknown]
  - Pollakiuria [Unknown]
  - Headache [Unknown]
  - Urine odour abnormal [Unknown]
